FAERS Safety Report 9140152 (Version 2)
Quarter: 2013Q2

REPORT INFORMATION
  Report Type: Spontaneous
  Country: BR (occurrence: BR)
  Receive Date: 20130305
  Receipt Date: 20130513
  Transmission Date: 20140414
  Serious: Yes (Other)
  Sender: FDA-Public Use
  Company Number: PHHY2013BR021120

PATIENT
  Age: 54 Year
  Sex: Male

DRUGS (5)
  1. RASILEZ [Suspect]
     Indication: HYPERTENSION
     Dosage: 1 DF, DAILY (300 MG)
     Route: 048
  2. LEVOID [Concomitant]
     Indication: HYPOTHYROIDISM
     Dosage: 25 MG, DAILY
     Route: 048
  3. SELOZOK [Concomitant]
     Indication: ARRHYTHMIA
     Dosage: 50 MG, DAILY
     Route: 048
  4. ALLOPURINOL [Concomitant]
     Indication: HYPERURICAEMIA
     Dosage: 2 DF (200MG), DAILY
     Route: 048
  5. BEZAFIBRATO [Concomitant]
     Indication: BLOOD TRIGLYCERIDES
     Dosage: 200 MG, DAILY
     Route: 048

REACTIONS (5)
  - Hypothyroidism [Unknown]
  - Blood thyroid stimulating hormone abnormal [Recovered/Resolved]
  - Throat tightness [Not Recovered/Not Resolved]
  - Anxiety [Not Recovered/Not Resolved]
  - Blood creatinine abnormal [Recovered/Resolved]
